FAERS Safety Report 17352111 (Version 2)
Quarter: 2020Q1

REPORT INFORMATION
  Report Type: Report from Study
  Country: US (occurrence: US)
  Receive Date: 20200130
  Receipt Date: 20200214
  Transmission Date: 20200409
  Serious: Yes (Hospitalization)
  Sender: FDA-Public Use
  Company Number: US-SHIRE-US202003568

PATIENT
  Age: 66 Year
  Sex: Female
  Weight: 60 kg

DRUGS (3)
  1. VITAMINS NOS [Concomitant]
     Active Substance: VITAMINS
     Indication: HYPOCALCAEMIA
  2. TEDUGLUTIDE [Suspect]
     Active Substance: TEDUGLUTIDE
     Indication: SHORT-BOWEL SYNDROME
     Dosage: 2.93 MILLIGRAM, (TED DAILY DOSE 0.05 MG/G, 7 DOSES PER WEEK) 1X/DAY:QD
     Route: 065
     Dates: start: 20180826, end: 20190530
  3. TEDUGLUTIDE [Suspect]
     Active Substance: TEDUGLUTIDE
     Dosage: 2.93 MILLIGRAM, (TED DAULY DOSE 0.05 MG/G, 7 DOSES PER WEEK) 1X/DAY:QD
     Route: 065
     Dates: start: 201906

REACTIONS (2)
  - Pyrexia [Not Recovered/Not Resolved]
  - Blood glucose increased [Not Recovered/Not Resolved]

NARRATIVE: CASE EVENT DATE: 20200211
